FAERS Safety Report 25349572 (Version 1)
Quarter: 2025Q2

REPORT INFORMATION
  Report Type: Spontaneous
  Country: US (occurrence: US)
  Receive Date: 20250522
  Receipt Date: 20250522
  Transmission Date: 20250717
  Serious: No
  Sender: JOHNSON AND JOHNSON
  Company Number: US-JNJFOC-20250516155

PATIENT
  Sex: Female

DRUGS (1)
  1. SIMPONI [Suspect]
     Active Substance: GOLIMUMAB
     Indication: Rheumatoid arthritis
     Route: 058
     Dates: start: 20250429

REACTIONS (7)
  - Weight increased [Unknown]
  - Nasal congestion [Unknown]
  - Dry skin [Unknown]
  - Gait disturbance [Unknown]
  - Joint stiffness [Unknown]
  - Poor quality sleep [Unknown]
  - Headache [Unknown]

NARRATIVE: CASE EVENT DATE: 20250101
